FAERS Safety Report 7002936-4 (Version None)
Quarter: 2010Q3

REPORT INFORMATION
  Report Type: 
  Country: None (occurrence: None)
  Receive Date: 20100920
  Receipt Date: 20100422
  Transmission Date: 20110219
  Serious: No
  Sender: FDA-Public Use
  Company Number: US-ASTRAZENECA-2010SE18015

PATIENT
  Age: 52 Year
  Sex: Female
  Weight: 85.3 kg

DRUGS (1)
  1. SEROQUEL [Suspect]
     Indication: BIPOLAR DISORDER
     Route: 048
     Dates: start: 20100101, end: 20100401

REACTIONS (3)
  - FLATULENCE [None]
  - HICCUPS [None]
  - WEIGHT INCREASED [None]
